FAERS Safety Report 24119145 (Version 3)
Quarter: 2024Q3

REPORT INFORMATION
  Report Type: Report from Study
  Country: ES (occurrence: ES)
  Receive Date: 20240722
  Receipt Date: 20240807
  Transmission Date: 20241017
  Serious: Yes (Other)
  Sender: MYLAN
  Company Number: ES-PFIZER INC-PV202400083599

PATIENT
  Age: 8 Year
  Sex: Female
  Weight: 21 kg

DRUGS (11)
  1. METHOTREXATE [Suspect]
     Active Substance: METHOTREXATE
     Indication: Leukaemia
     Dosage: 12 MILLIGRAM, ONCE
     Route: 037
     Dates: start: 20240605, end: 20240605
  2. MITOXANTRONE [Suspect]
     Active Substance: MITOXANTRONE HYDROCHLORIDE
     Indication: Leukaemia
     Dosage: 9 MILLIGRAM, QD
     Route: 042
     Dates: start: 20240529, end: 20240530
  3. PEGASPARGASE [Suspect]
     Active Substance: PEGASPARGASE
     Indication: Leukaemia
     Dosage: 900 INTERNATIONAL UNIT, Q2W (REGIMEN1)
     Route: 037
     Dates: start: 20240531, end: 20240614
  4. HYDROCORTISONE [Suspect]
     Active Substance: HYDROCORTISONE\HYDROCORTISONE ACETATE
     Indication: Leukaemia
     Dosage: 12 MILLIGRAM, ONCE (REGIMEN1)
     Route: 037
     Dates: start: 20240605, end: 20240605
  5. CYTARABINE [Suspect]
     Active Substance: CYTARABINE
     Indication: Leukaemia
     Dosage: 24 MILLIGRAM, ONCE (REGIMEN1)
     Route: 037
     Dates: start: 20240605, end: 20240605
  6. DEXAMETHASONE [Suspect]
     Active Substance: DEXAMETHASONE
     Indication: Leukaemia
     Dosage: 9 MILLIGRAM, BID (REGIMEN1)
     Route: 042
     Dates: start: 20240529, end: 20240616
  7. VINCRISTINE SULFATE [Suspect]
     Active Substance: VINCRISTINE SULFATE
     Indication: Leukaemia
     Dosage: 1.3 MILLIGRAM, QW (EVERY WEEK, REGIMEN1)
     Route: 042
     Dates: start: 20240514
  8. VINCRISTINE SULFATE [Suspect]
     Active Substance: VINCRISTINE SULFATE
     Dosage: 1.3 MILLIGRAM, QW (EVERY WEEK)
     Route: 042
     Dates: start: 20240531
  9. AMPHOTERICIN B [Suspect]
     Active Substance: AMPHOTERICIN B
     Indication: Fungaemia
     Dosage: 100 MILLIGRAM, QD
     Route: 042
     Dates: start: 20240618, end: 20240626
  10. DEFIBROTIDE [Concomitant]
     Active Substance: DEFIBROTIDE (BOVINE)
     Indication: Prophylaxis
     Dosage: 125 MILLIGRAM, Q6H
     Route: 042
     Dates: start: 20240621
  11. URSODIOL [Concomitant]
     Active Substance: URSODIOL
     Indication: Prophylaxis
     Dosage: 200 MILLIGRAM, Q8H
     Route: 048
     Dates: start: 20240621

REACTIONS (2)
  - Venoocclusive liver disease [Recovered/Resolved]
  - Hypokalaemia [Recovered/Resolved]

NARRATIVE: CASE EVENT DATE: 20240625
